FAERS Safety Report 16170029 (Version 1)
Quarter: 2019Q2

REPORT INFORMATION
  Report Type: Spontaneous
  Country: GB (occurrence: GB)
  Receive Date: 20190408
  Receipt Date: 20190408
  Transmission Date: 20190711
  Serious: Yes (Hospitalization)
  Sender: FDA-Public Use
  Company Number: PHHY2015GB022348

PATIENT
  Age: 49 Year
  Sex: Female

DRUGS (6)
  1. AMOXICILLIN. [Suspect]
     Active Substance: AMOXICILLIN
     Indication: HELICOBACTER INFECTION
     Dosage: 1 G, BID
     Route: 065
  2. LANSOPRAZOLE. [Concomitant]
     Active Substance: LANSOPRAZOLE
     Indication: HELICOBACTER INFECTION
     Dosage: 30 MG, BID
     Route: 065
  3. CIPROFLOXACIN. [Concomitant]
     Active Substance: CIPROFLOXACIN
     Indication: HELICOBACTER INFECTION
     Dosage: 500 MG, BID
     Route: 065
  4. REFRESH CELLUVISC [Concomitant]
     Active Substance: CARBOXYMETHYLCELLULOSE SODIUM
     Indication: DRY EYE
     Dosage: UNK
     Route: 065
  5. CLARITHROMYCIN. [Suspect]
     Active Substance: CLARITHROMYCIN
     Indication: HELICOBACTER INFECTION
     Route: 065
  6. LACRILUBE [Concomitant]
     Indication: DRY EYE
     Route: 065

REACTIONS (23)
  - Personality change [Recovered/Resolved]
  - Product dispensing error [Unknown]
  - Thinking abnormal [Recovered/Resolved]
  - Agitation [Recovered/Resolved]
  - Incoherent [Recovered/Resolved]
  - Psychomotor hyperactivity [Recovered/Resolved]
  - Histrionic personality disorder [Recovered/Resolved]
  - Panic attack [Recovered/Resolved]
  - Irritability [Recovered/Resolved]
  - Paranoia [Recovered/Resolved]
  - Suspiciousness [Recovered/Resolved]
  - Psychotic disorder [Recovered/Resolved]
  - Affect lability [Recovered/Resolved]
  - Insomnia [Recovered/Resolved]
  - Screaming [Recovered/Resolved]
  - Disorientation [Recovered/Resolved]
  - Anxiety [Recovered/Resolved]
  - Delusion [Recovered/Resolved]
  - Hypomania [Recovered/Resolved]
  - Abnormal behaviour [Recovered/Resolved]
  - Hallucinations, mixed [Recovered/Resolved]
  - Confusional state [Recovered/Resolved]
  - Dysgraphia [Recovered/Resolved]
